FAERS Safety Report 13513676 (Version 3)
Quarter: 2017Q3

REPORT INFORMATION
  Report Type: Spontaneous
  Country: GB (occurrence: GB)
  Receive Date: 20170504
  Receipt Date: 20170806
  Transmission Date: 20171127
  Serious: Yes (Other)
  Sender: FDA-Public Use
  Company Number: GB-AMGEN-GBRSP2017068328

PATIENT
  Age: 45 Year
  Sex: Male

DRUGS (1)
  1. ENBREL [Suspect]
     Active Substance: ETANERCEPT
     Indication: PRODUCT USED FOR UNKNOWN INDICATION
     Dosage: 50 MG, UNK
     Route: 058
     Dates: start: 20161018

REACTIONS (12)
  - Pain [Unknown]
  - Liver function test increased [Unknown]
  - Benign neoplasm [Unknown]
  - Vitamin D decreased [Unknown]
  - Gastrointestinal haemorrhage [Unknown]
  - Tendonitis [Unknown]
  - Oesophageal ulcer [Unknown]
  - Vitamin B12 deficiency [Unknown]
  - Fatigue [Unknown]
  - Intestinal ulcer [Unknown]
  - Rheumatoid factor increased [Unknown]
  - Systemic lupus erythematosus [Unknown]
